FAERS Safety Report 17743183 (Version 2)
Quarter: 2020Q2

REPORT INFORMATION
  Report Type: Spontaneous
  Country: US (occurrence: US)
  Receive Date: 20200504
  Receipt Date: 20200624
  Transmission Date: 20200714
  Serious: Yes (Other)
  Sender: FDA-Public Use
  Company Number: US-BAYER-2020-074947

PATIENT
  Age: 39 Year
  Sex: Female
  Weight: 51 kg

DRUGS (1)
  1. MIRENA [Suspect]
     Active Substance: LEVONORGESTREL
     Indication: CONTRACEPTION
     Dosage: 20  ?G PER DAY CONT^
     Route: 015
     Dates: start: 20200402, end: 20200512

REACTIONS (2)
  - Uterine perforation [Recovered/Resolved]
  - Adenomyosis [None]

NARRATIVE: CASE EVENT DATE: 20200427
